FAERS Safety Report 10263198 (Version 1)
Quarter: 2014Q2

REPORT INFORMATION
  Report Type: Report from Study
  Country: US (occurrence: US)
  Receive Date: 20140626
  Receipt Date: 20140626
  Transmission Date: 20141212
  Serious: Yes (Death)
  Sender: FDA-Public Use
  Company Number: US-MYLANLABS-2014S1006268

PATIENT
  Sex: Male

DRUGS (11)
  1. CLOZAPINE TABLETS [Suspect]
     Route: 048
     Dates: start: 20130416, end: 201403
  2. TAMSULOSIN [Concomitant]
     Route: 048
  3. FINASTERIDE [Concomitant]
     Route: 048
  4. QUETIAPINE [Concomitant]
  5. LITHIUM [Concomitant]
     Route: 048
  6. MIRTAZAPINE [Concomitant]
     Route: 048
  7. POTASSIUM [Concomitant]
     Route: 048
  8. VESICARE [Concomitant]
     Route: 048
  9. VITAMIN B 12 [Concomitant]
  10. SENNA [Concomitant]
     Route: 048
  11. FERROUS SULFATE [Concomitant]
     Route: 048

REACTIONS (1)
  - Pneumonia [Fatal]
